FAERS Safety Report 7505401-0 (Version None)
Quarter: 2011Q2

REPORT INFORMATION
  Report Type: 
  Country: None (occurrence: None)
  Receive Date: 20110526
  Receipt Date: 20110523
  Transmission Date: 20111010
  Serious: Yes (Hospitalization)
  Sender: FDA-Public Use
  Company Number: US-B.I. PHARMACEUTICALS,INC./RIDGEFIELD-2011-BP-13765BP

PATIENT
  Age: 49 Year
  Sex: Male

DRUGS (7)
  1. ASPIRIN [Concomitant]
     Indication: PROPHYLAXIS
  2. ADVAIR DISKUS 100/50 [Concomitant]
     Indication: ASTHMA
  3. SPIRIVA [Suspect]
     Indication: ASTHMA
     Dosage: 18 MCG
     Route: 055
     Dates: start: 20101128
  4. STOOL SOFTENER [Concomitant]
     Indication: CONSTIPATION
  5. LISINOPRIL [Concomitant]
     Indication: HYPERTENSION
     Dosage: 40 MG
  6. NORVASC [Concomitant]
     Indication: HYPERTENSION
     Dosage: 10 MG
  7. MULTI-VITAMIN [Concomitant]
     Indication: PROPHYLAXIS

REACTIONS (1)
  - PNEUMONIA [None]
